FAERS Safety Report 23157660 (Version 8)
Quarter: 2025Q3

REPORT INFORMATION
  Report Type: Spontaneous
  Country: EU (occurrence: EU)
  Receive Date: 20231108
  Receipt Date: 20250722
  Transmission Date: 20251020
  Serious: Yes (Hospitalization, Other)
  Sender: SANDOZ
  Company Number: EU-KRKA-PL2023K09228LIT

PATIENT
  Age: 60 Year
  Sex: Female

DRUGS (21)
  1. ASPIRIN [Suspect]
     Active Substance: ASPIRIN
     Indication: Stenosis
     Route: 065
  2. DICLOFENAC [Suspect]
     Active Substance: DICLOFENAC
     Indication: Inflammation
     Route: 065
     Dates: start: 20210208
  3. DICLOFENAC [Suspect]
     Active Substance: DICLOFENAC
     Indication: Antiinflammatory therapy
     Dosage: 90 MILLIGRAM, ONCE A DAY, IN MAXIMUM DOSES
     Route: 065
  4. DICLOFENAC [Suspect]
     Active Substance: DICLOFENAC
     Indication: Pain
  5. DICLOFENAC [Suspect]
     Active Substance: DICLOFENAC
     Indication: Rheumatic fever
  6. DICLOFENAC [Suspect]
     Active Substance: DICLOFENAC
     Indication: Rheumatoid arthritis
  7. ETORICOXIB [Suspect]
     Active Substance: ETORICOXIB
     Indication: Pain
     Dosage: 90 MILLIGRAM, 1/DAY
     Route: 065
  8. KETOPROFEN [Suspect]
     Active Substance: KETOPROFEN
     Indication: Inflammatory pain
     Route: 065
  9. METHOTREXATE [Suspect]
     Active Substance: METHOTREXATE
     Indication: Pain
     Dosage: 15 MILLIGRAM TOTAL (15 MG, SINGLE DOSE, INJECTION
     Route: 065
  10. METHOTREXATE [Suspect]
     Active Substance: METHOTREXATE
     Indication: Inflammation
  11. METHOTREXATE [Suspect]
     Active Substance: METHOTREXATE
     Indication: Rheumatoid arthritis
  12. MELOXICAM [Suspect]
     Active Substance: MELOXICAM
     Indication: Pain
     Route: 065
  13. MELOXICAM [Suspect]
     Active Substance: MELOXICAM
     Indication: Inflammation
  14. ACETAMINOPHEN [Suspect]
     Active Substance: ACETAMINOPHEN
     Indication: Pain
     Route: 048
  15. ACETAMINOPHEN [Suspect]
     Active Substance: ACETAMINOPHEN
     Indication: Antiinflammatory therapy
     Route: 048
  16. ACETAMINOPHEN [Suspect]
     Active Substance: ACETAMINOPHEN
     Indication: Inflammation
  17. ACETAMINOPHEN [Suspect]
     Active Substance: ACETAMINOPHEN
     Indication: Rheumatoid arthritis
  18. TRAMADOL HYDROCHLORIDE [Suspect]
     Active Substance: TRAMADOL HYDROCHLORIDE
     Indication: Pain
     Route: 065
  19. LEVOTHYROXINE [Concomitant]
     Active Substance: LEVOTHYROXINE
     Indication: Product used for unknown indication
     Route: 065
  20. PANTOPRAZOLE [Concomitant]
     Active Substance: PANTOPRAZOLE
     Indication: Product used for unknown indication
     Route: 065
  21. PREGABALIN [Concomitant]
     Active Substance: PREGABALIN
     Indication: Product used for unknown indication
     Route: 065

REACTIONS (14)
  - Haemorrhage [Unknown]
  - Rheumatoid arthritis [Recovered/Resolved]
  - Gastric ulcer [Unknown]
  - Tachycardia [Unknown]
  - Diaphragmatic hernia [Unknown]
  - Diarrhoea haemorrhagic [Unknown]
  - Haemoglobin abnormal [Unknown]
  - Thyroid hormones decreased [Unknown]
  - Gastritis [Recovered/Resolved]
  - Arthralgia [Recovering/Resolving]
  - Arthralgia [Recovering/Resolving]
  - Chest pain [Recovered/Resolved]
  - Drug intolerance [Unknown]
  - Product use in unapproved indication [Unknown]

NARRATIVE: CASE EVENT DATE: 20210208
